FAERS Safety Report 8595882 (Version 2)
Quarter: 2013Q3

REPORT INFORMATION
  Report Type: Spontaneous
  Country: US (occurrence: US)
  Receive Date: 20120605
  Receipt Date: 20130723
  Transmission Date: 20140515
  Serious: Yes (Disabling, Other)
  Sender: FDA-Public Use
  Company Number: US-ASTRAZENECA-2012SE34495

PATIENT
  Age: 51 Year
  Sex: Female

DRUGS (25)
  1. NEXIUM [Suspect]
     Indication: GASTROOESOPHAGEAL REFLUX DISEASE
     Route: 048
     Dates: start: 2002
  2. NEXIUM [Suspect]
     Indication: GASTROOESOPHAGEAL REFLUX DISEASE
     Route: 048
     Dates: start: 20020321
  3. OMEPRAZOLE [Concomitant]
     Indication: GASTROOESOPHAGEAL REFLUX DISEASE
  4. CARVEDILOL [Concomitant]
     Indication: CARDIAC DISORDER
     Dates: start: 20090414
  5. ALEVE [Concomitant]
     Indication: PAIN
     Dates: start: 20090414
  6. HYDROCO/ACETAMIN [Concomitant]
     Indication: PAIN
  7. MELOXICAM [Concomitant]
     Indication: PAIN
  8. METFORMIN [Concomitant]
     Indication: BLOOD GLUCOSE INCREASED
     Dates: start: 20090414
  9. BENAZEPRIL [Concomitant]
     Indication: BLOOD PRESSURE ABNORMAL
  10. INDAPAMIDE [Concomitant]
     Indication: BLOOD PRESSURE ABNORMAL
  11. SIMVASTATIN [Concomitant]
     Indication: BLOOD CHOLESTEROL INCREASED
  12. BETA-CAROTENE [Concomitant]
     Indication: IMMUNE SYSTEM DISORDER
     Dates: start: 20090414
  13. VITAMIN E [Concomitant]
     Indication: CARDIAC DISORDER
  14. CENTRUM SILVER [Concomitant]
     Indication: VITAMIN SUPPLEMENTATION
  15. CALCIUM D,OYESTER SHELL [Concomitant]
     Indication: NUTRITIONAL SUPPLEMENTATION
  16. FISH [Concomitant]
     Indication: NUTRITIONAL SUPPLEMENTATION
  17. FLAXSEED [Concomitant]
     Indication: NUTRITIONAL SUPPLEMENTATION
  18. BORAGE OIL [Concomitant]
     Indication: NUTRITIONAL SUPPLEMENTATION
  19. OMEGA 3 6 9 [Concomitant]
     Indication: NUTRITIONAL SUPPLEMENTATION
  20. LOTREL [Concomitant]
     Indication: PAIN
     Dosage: 10/40 MG DAILY
     Dates: start: 20090414
  21. VYTORIN [Concomitant]
     Indication: PAIN
     Dates: start: 20090414
  22. CALCIUM [Concomitant]
     Dates: start: 20090414
  23. PREDNISONE [Concomitant]
     Dosage: TAKE 4 TABS PO ONCE A DAY FOR 3 WEEKS THEN 3 TABS ONCE A DAY FOR 3 WEEKS THEN 2 TABS ONCE A DAY FOR
  24. TUSSIONEX [Concomitant]
     Dates: start: 20030310
  25. GUAIFENEX [Concomitant]
     Dates: start: 20051006

REACTIONS (15)
  - Breast cancer metastatic [Unknown]
  - Bone cancer [Unknown]
  - Arthropathy [Unknown]
  - Musculoskeletal discomfort [Unknown]
  - Osteoporosis [Unknown]
  - Fibula fracture [Unknown]
  - Ankle fracture [Unknown]
  - Arthritis [Unknown]
  - Diabetes mellitus [Unknown]
  - Hyperlipidaemia [Unknown]
  - Carpal tunnel syndrome [Unknown]
  - Osteoarthritis [Unknown]
  - Trigger finger [Unknown]
  - Polymyalgia rheumatica [Unknown]
  - Paraneoplastic syndrome [Unknown]
